FAERS Safety Report 9936635 (Version 1)
Quarter: 2014Q1

REPORT INFORMATION
  Report Type: Spontaneous
  Country: US (occurrence: US)
  Receive Date: 20140228
  Receipt Date: 20140228
  Transmission Date: 20141002
  Serious: No
  Sender: FDA-Public Use
  Company Number: US-AMGEN-USASP2014008054

PATIENT
  Age: 68 Year
  Sex: Female
  Weight: 72.56 kg

DRUGS (11)
  1. ENBREL [Suspect]
     Indication: PRODUCT USED FOR UNKNOWN INDICATION
     Dosage: 50 MG/ML, UNK
     Route: 065
  2. CLOBETASOL E [Concomitant]
     Dosage: UNK
  3. OXISTAT [Concomitant]
     Dosage: UNK
  4. VITAMIN E                          /00110501/ [Concomitant]
     Dosage: 1000 UNIT, UNK
  5. METOPROLOL [Concomitant]
     Dosage: 25 MG, UNK
  6. PLAVIX [Concomitant]
     Dosage: 75 MG, UNK
  7. MUCINEX D [Concomitant]
     Dosage: 60-600 MG, UNK
  8. VITAMIN D                          /00107901/ [Concomitant]
     Dosage: 1000 UNIT, UNK
  9. VYTORIN [Concomitant]
     Dosage: 10-10 MG, UNK
  10. VITAMIN C                          /00008001/ [Concomitant]
     Dosage: 500 MG, UNK
  11. CALCIUM D                          /00944201/ [Concomitant]
     Dosage: UNK

REACTIONS (1)
  - Drug ineffective [Unknown]
